FAERS Safety Report 10310379 (Version 1)
Quarter: 2014Q3

REPORT INFORMATION
  Report Type: Spontaneous
  Country: US (occurrence: None)
  Receive Date: 20140716
  Receipt Date: 20140716
  Transmission Date: 20150326
  Serious: Yes (Hospitalization)
  Sender: FDA-Public Use
  Company Number: None

PATIENT
  Age: 63 Year
  Sex: Female
  Weight: 85 kg

DRUGS (1)
  1. CISPLATIN. [Suspect]
     Active Substance: CISPLATIN

REACTIONS (8)
  - Electrocardiogram ST segment abnormal [None]
  - Renal failure acute [None]
  - Rhabdomyolysis [None]
  - Myocardial necrosis marker increased [None]
  - Haemodialysis [None]
  - Nephropathy toxic [None]
  - Syncope [None]
  - Dehydration [None]

NARRATIVE: CASE EVENT DATE: 20140710
